FAERS Safety Report 13522391 (Version 4)
Quarter: 2017Q3

REPORT INFORMATION
  Report Type: Report from Study
  Country: GB (occurrence: GB)
  Receive Date: 20170508
  Receipt Date: 20170724
  Transmission Date: 20171127
  Serious: Yes (Hospitalization, Other)
  Sender: FDA-Public Use
  Company Number: GB-JNJFOC-20170505228

PATIENT
  Age: 57 Year
  Sex: Female
  Weight: 69 kg

DRUGS (23)
  1. BUTRANS [Suspect]
     Active Substance: BUPRENORPHINE
     Indication: PRODUCT USED FOR UNKNOWN INDICATION
     Route: 065
  2. CARBOCISTEINE [Concomitant]
     Active Substance: CARBOCYSTEINE
     Dosage: ONE TO BE TAKEN 3 TIMES A DAY
     Route: 065
  3. THYROXINE [Concomitant]
     Active Substance: LEVOTHYROXINE
     Route: 065
     Dates: start: 20100601
  4. OMEPRAZOLE. [Concomitant]
     Active Substance: OMEPRAZOLE
     Dosage: ALTERNATIVE DAY
     Route: 065
     Dates: start: 20010119
  5. AVEENO CLEAR COMPLEXION CLEANSING BAR [Concomitant]
     Active Substance: SALICYLIC ACID
     Route: 065
  6. DOCUSATE [Concomitant]
     Active Substance: DOCUSATE
     Dosage: ONE DROP UPTO 4 TIMES A DAY AS REQUIRED
     Route: 065
  7. RAMIPRIL. [Concomitant]
     Active Substance: RAMIPRIL
     Route: 065
     Dates: start: 20120101
  8. ZOMORPH [Concomitant]
     Active Substance: MORPHINE SULFATE
     Route: 065
  9. APIXABAN [Concomitant]
     Active Substance: APIXABAN
     Route: 065
     Dates: start: 20161101
  10. CALCIUM + VITAMIN D3 [Concomitant]
     Active Substance: CALCIUM CARBONATE\CHOLECALCIFEROL
     Route: 065
     Dates: start: 20151001
  11. LAXIDO ORANGE [Concomitant]
     Dosage: AS NECCESSARY
     Route: 048
  12. LEVOTHYROXINE SODIUM. [Concomitant]
     Active Substance: LEVOTHYROXINE SODIUM
     Dosage: ALTERNATIVE DAY
     Route: 065
  13. SENNA [Concomitant]
     Active Substance: SENNA LEAF\SENNOSIDES\SENNOSIDES A AND B
     Route: 065
  14. STELARA [Suspect]
     Active Substance: USTEKINUMAB
     Indication: PSORIASIS
     Route: 058
     Dates: start: 20120209, end: 20170317
  15. PREGABALIN. [Concomitant]
     Active Substance: PREGABALIN
     Route: 065
     Dates: start: 20100101
  16. VENTOLINE [Concomitant]
     Active Substance: ALBUTEROL
     Route: 065
     Dates: start: 20120101
  17. ADCAL D3 [Concomitant]
     Active Substance: CALCIUM CARBONATE\CHOLECALCIFEROL
     Dosage: 750MG/200 UNIT
     Route: 065
     Dates: start: 20151001
  18. APIXABAN [Concomitant]
     Active Substance: APIXABAN
     Route: 065
  19. SALMETEROL [Concomitant]
     Active Substance: SALMETEROL
     Route: 065
  20. CARBOMER [Concomitant]
     Active Substance: CARBOMER
     Dosage: ONE DROP UPTO 4 TIMES A DAY AS REQUIRED
     Route: 047
  21. SALBUTAMOL [Concomitant]
     Active Substance: ALBUTEROL
     Route: 065
  22. MORPHINE [Concomitant]
     Active Substance: MORPHINE
     Route: 065
     Dates: start: 20120101
  23. AMIODARONE [Concomitant]
     Active Substance: AMIODARONE
     Route: 065
     Dates: start: 20160101

REACTIONS (23)
  - Fracture [Recovered/Resolved]
  - Acute kidney injury [Recovered/Resolved]
  - Hyperlipidaemia [Not Recovered/Not Resolved]
  - Chronic obstructive pulmonary disease [Recovered/Resolved]
  - Medical device removal [Unknown]
  - Ear pain [Recovered/Resolved]
  - Acute coronary syndrome [Not Recovered/Not Resolved]
  - Hypersensitivity [Recovered/Resolved]
  - Chronic kidney disease [Not Recovered/Not Resolved]
  - Labile blood pressure [Unknown]
  - Lower respiratory tract infection [Recovered/Resolved with Sequelae]
  - Asthma [Recovered/Resolved]
  - Myocardial infarction [Recovered/Resolved]
  - Constipation [Recovered/Resolved]
  - Atrial fibrillation [Recovered/Resolved]
  - Hypothyroidism [Not Recovered/Not Resolved]
  - Osteoporosis [Not Recovered/Not Resolved]
  - Dry eye [Not Recovered/Not Resolved]
  - Supraventricular tachycardia [Recovered/Resolved]
  - Stress cardiomyopathy [Not Recovered/Not Resolved]
  - Hypertension [Not Recovered/Not Resolved]
  - Angle closure glaucoma [Not Recovered/Not Resolved]
  - Depressed mood [Recovered/Resolved]

NARRATIVE: CASE EVENT DATE: 20120528
